FAERS Safety Report 9940175 (Version 1)
Quarter: 2014Q1

REPORT INFORMATION
  Report Type: Report from Study
  Country: US (occurrence: US)
  Receive Date: 20140303
  Receipt Date: 20140303
  Transmission Date: 20141002
  Serious: No
  Sender: FDA-Public Use
  Company Number: US-ABBVIE-13P-163-1034445-00

PATIENT
  Age: 34 Year
  Sex: Female
  Weight: 102.15 kg

DRUGS (3)
  1. HUMIRA [Suspect]
     Indication: BEHCET^S SYNDROME
     Dates: start: 201209
  2. AZATHIOTRINE [Concomitant]
     Indication: BEHCET^S SYNDROME
  3. PREDNISONE [Concomitant]
     Indication: BEHCET^S SYNDROME

REACTIONS (1)
  - Off label use [Not Recovered/Not Resolved]
